FAERS Safety Report 8086298-X (Version None)
Quarter: 2012Q1

REPORT INFORMATION
  Report Type: 
  Country: None (occurrence: None)
  Receive Date: 20120128
  Receipt Date: 20110516
  Transmission Date: 20120608
  Serious: Yes (Other)
  Sender: FDA-Public Use
  Company Number: US-ABBOTT-11P-163-0722535-00

PATIENT
  Sex: Female
  Weight: 44.492 kg

DRUGS (13)
  1. PEPCID [Concomitant]
     Indication: GASTROINTESTINAL DISORDER
     Dates: start: 20010501
  2. PREDNISONE TAB [Concomitant]
     Indication: MYASTHENIA GRAVIS
  3. VITAMIN D [Concomitant]
     Indication: VITAMIN SUPPLEMENTATION
  4. METHOTREXATE [Concomitant]
     Indication: RHEUMATOID ARTHRITIS
     Dates: start: 20040701
  5. PREDNISONE TAB [Concomitant]
     Indication: RHEUMATOID ARTHRITIS
     Dates: start: 20050104
  6. CELEBREX [Concomitant]
     Indication: RHEUMATOID ARTHRITIS
     Dates: start: 20050510
  7. FOLIC ACID [Concomitant]
     Indication: VITAMIN SUPPLEMENTATION
     Dates: start: 20000101
  8. PEPCID [Concomitant]
     Indication: PROPHYLAXIS
  9. MULTIPLE VITAMINS [Concomitant]
     Indication: ROUTINE HEALTH MAINTENANCE
     Dates: start: 20050901
  10. HUMIRA [Suspect]
     Indication: RHEUMATOID ARTHRITIS
     Dosage: 1 IN 2 WEEKS; DURING A 10 YEAR STUDY
     Dates: start: 20010101, end: 20110117
  11. FOLIC ACID [Concomitant]
     Indication: RHEUMATOID ARTHRITIS
  12. LORATADINE [Concomitant]
     Indication: SEASONAL ALLERGY
     Dates: start: 20040701
  13. HUMIRA [Suspect]
     Dosage: POST STUDY, OPEN LABEL USE
     Dates: start: 20110101, end: 20110401

REACTIONS (2)
  - BREAST CANCER IN SITU [None]
  - BREAST CANCER [None]
